FAERS Safety Report 7018633-5 (Version None)
Quarter: 2010Q3

REPORT INFORMATION
  Report Type: 
  Country: None (occurrence: None)
  Receive Date: 20100928
  Receipt Date: 20100923
  Transmission Date: 20110219
  Serious: Yes (Death, Hospitalization)
  Sender: FDA-Public Use
  Company Number: GB-MERCK-1009GBR00090

PATIENT
  Age: 89 Year
  Sex: Female
  Weight: 46 kg

DRUGS (1)
  1. ZOCOR [Suspect]
     Route: 048
     Dates: start: 20050511

REACTIONS (1)
  - RHABDOMYOLYSIS [None]
